FAERS Safety Report 9695227 (Version 2)
Quarter: 2014Q1

REPORT INFORMATION
  Report Type: Spontaneous
  Country: SG (occurrence: SG)
  Receive Date: 20131119
  Receipt Date: 20140103
  Transmission Date: 20141002
  Serious: Yes (Other)
  Sender: FDA-Public Use
  Company Number: SG-BAYER-2013-137186

PATIENT
  Sex: Female

DRUGS (1)
  1. STIVARGA [Suspect]
     Indication: COLORECTAL CANCER METASTATIC
     Dosage: 80 MG DAILY
     Route: 048

REACTIONS (3)
  - Blood albumin decreased [Recovered/Resolved]
  - Transaminases increased [None]
  - Blood bilirubin increased [None]
